FAERS Safety Report 25483488 (Version 1)
Quarter: 2025Q2

REPORT INFORMATION
  Report Type: Spontaneous
  Country: US (occurrence: US)
  Receive Date: 20250626
  Receipt Date: 20250626
  Transmission Date: 20250717
  Serious: No
  Sender: LEGACY PHARMACEUTICAL PACKAGING
  Company Number: US-SEBELA IRELAND LIMITED-2024SEB00051

PATIENT
  Sex: Female

DRUGS (7)
  1. LOTRONEX [Suspect]
     Active Substance: ALOSETRON HYDROCHLORIDE
     Indication: Irritable bowel syndrome
     Route: 048
     Dates: end: 2014
  2. LOTRONEX [Suspect]
     Active Substance: ALOSETRON HYDROCHLORIDE
     Indication: Colitis microscopic
     Route: 048
     Dates: start: 2014
  3. AMLODIPINE [Concomitant]
     Active Substance: AMLODIPINE BESYLATE
  4. IRBESARTAN [Concomitant]
     Active Substance: IRBESARTAN
  5. PRAVASTATIN [Concomitant]
     Active Substance: PRAVASTATIN
  6. CITALOPRAM [Concomitant]
     Active Substance: CITALOPRAM
  7. CYPROHEPTADINE [Concomitant]
     Active Substance: CYPROHEPTADINE
     Indication: Hypersensitivity

REACTIONS (1)
  - Product dose omission issue [Recovered/Resolved]

NARRATIVE: CASE EVENT DATE: 20140101
